FAERS Safety Report 24097966 (Version 1)
Quarter: 2024Q3

REPORT INFORMATION
  Report Type: Report from Study
  Country: US (occurrence: US)
  Receive Date: 20240716
  Receipt Date: 20240716
  Transmission Date: 20241016
  Serious: Yes (Other)
  Sender: JOHNSON AND JOHNSON
  Company Number: US-JNJFOC-20240731729

PATIENT
  Age: 57 Year
  Sex: Male

DRUGS (2)
  1. SPRAVATO [Suspect]
     Active Substance: ESKETAMINE
     Indication: Depression
     Dosage: ^56 MG, 1 TOTAL DOSE^
     Dates: start: 20240129, end: 20240129
  2. SPRAVATO [Suspect]
     Active Substance: ESKETAMINE
     Dosage: ^84 MG, 20 TOTAL DOSES^?IT WAS REPORTED THAT THE PATIENT WAS CURRENTLY RECEIVING TREATMENT ONCE WEEK
     Dates: start: 20240201, end: 20240709

REACTIONS (2)
  - Nephrolithiasis [Unknown]
  - Stent removal [Unknown]

NARRATIVE: CASE EVENT DATE: 20240101
